FAERS Safety Report 8953937 (Version 2)
Quarter: 2013Q1

REPORT INFORMATION
  Report Type: Spontaneous
  Country: US (occurrence: US)
  Receive Date: 20121206
  Receipt Date: 20130324
  Transmission Date: 20140127
  Serious: Yes (Hospitalization)
  Sender: FDA-Public Use
  Company Number: US-B.I. PHARMACEUTICALS,INC./RIDGEFIELD-2012-BI-02201BP

PATIENT
  Age: 84 Year
  Sex: Male
  Weight: 107.5 kg

DRUGS (12)
  1. PRADAXA [Suspect]
     Indication: ANTICOAGULANT THERAPY
     Dosage: 300 MG
     Route: 048
     Dates: start: 20110606, end: 20111212
  2. PRADAXA [Suspect]
     Indication: ATRIAL FIBRILLATION
  3. ASPIRIN [Concomitant]
     Dosage: 325 MG
     Route: 048
  4. VITAMIN B1 [Concomitant]
     Dosage: 100 MG
     Route: 048
  5. VITAMIN B12 [Concomitant]
     Dosage: 500 MG
     Route: 048
  6. LOSARTAN [Concomitant]
     Dosage: 50 MG
     Route: 048
  7. FUROSEMIDE [Concomitant]
     Dosage: 40 MG
     Route: 048
  8. PROTONIX [Concomitant]
     Dosage: 40 MG
     Route: 048
  9. FLOMAX [Concomitant]
     Dosage: 0.4 MG
     Route: 048
  10. DIGOXIN [Concomitant]
     Indication: ATRIAL FIBRILLATION
     Dosage: 0.125 MG
     Route: 048
  11. RYTHMOL [Concomitant]
     Dosage: 225 MG
     Route: 048
  12. MIRAPEX [Concomitant]
     Dosage: 0.75 MG
     Route: 048

REACTIONS (1)
  - Gastrointestinal haemorrhage [Recovered/Resolved]
